APPROVED DRUG PRODUCT: OPANA ER
Active Ingredient: OXYMORPHONE HYDROCHLORIDE
Strength: 20MG **Federal Register determination that product was not discontinued or withdrawn for safety or effectiveness reasons**
Dosage Form/Route: TABLET, EXTENDED RELEASE;ORAL
Application: N021610 | Product #003
Applicant: ENDO OPERATIONS LTD
Approved: Jun 22, 2006 | RLD: Yes | RS: No | Type: DISCN

PATENTS:
Patent 8808737 | Expires: Jun 21, 2027
Patent 8871779 | Expires: Nov 22, 2029